FAERS Safety Report 13244652 (Version 2)
Quarter: 2017Q1

REPORT INFORMATION
  Report Type: Spontaneous
  Country: US (occurrence: US)
  Receive Date: 20170216
  Receipt Date: 20170329
  Transmission Date: 20170428
  Serious: No
  Sender: FDA-Public Use
  Company Number: US-JAZZ-2017-US-000943

PATIENT
  Sex: Female

DRUGS (11)
  1. NASALCROM [Concomitant]
     Active Substance: CROMOLYN SODIUM
  2. ALLEGRA ALLERGY [Concomitant]
     Active Substance: FEXOFENADINE HYDROCHLORIDE
  3. NASACORT ALLERGY 24HR [Concomitant]
     Active Substance: TRIAMCINOLONE ACETONIDE
  4. IMITREX [Concomitant]
     Active Substance: SUMATRIPTAN SUCCINATE
  5. XYREM [Suspect]
     Active Substance: SODIUM OXYBATE
     Indication: NARCOLEPSY
     Dosage: 2.25G, BID
     Route: 048
     Dates: start: 2016, end: 2016
  6. XYREM [Suspect]
     Active Substance: SODIUM OXYBATE
     Dosage: 4.5G, BID
     Route: 048
     Dates: start: 201611
  7. ASPIRIN                            /00002701/ [Concomitant]
     Active Substance: ASPIRIN
  8. XYREM [Suspect]
     Active Substance: SODIUM OXYBATE
     Indication: CATAPLEXY
     Dosage: DOSE ADJUSTMENT
     Route: 048
     Dates: start: 201607, end: 2016
  9. BENADRYL ALLERGY [Concomitant]
     Active Substance: DIPHENHYDRAMINE HYDROCHLORIDE
  10. IMPLANON [Concomitant]
     Active Substance: ETONOGESTREL
  11. PROAIR HFA [Concomitant]
     Active Substance: ALBUTEROL SULFATE

REACTIONS (1)
  - Headache [Not Recovered/Not Resolved]
